FAERS Safety Report 17824898 (Version 7)
Quarter: 2021Q2

REPORT INFORMATION
  Report Type: Spontaneous
  Country: US (occurrence: US)
  Receive Date: 20200526
  Receipt Date: 20210419
  Transmission Date: 20210717
  Serious: Yes (Hospitalization, Other)
  Sender: FDA-Public Use
  Company Number: US-SA-2020SA056420

PATIENT
  Age: 72 Year
  Sex: Female
  Weight: 56 kg

DRUGS (4)
  1. CAPRELSA [Suspect]
     Active Substance: VANDETANIB
     Indication: THYROID CANCER
     Dosage: 300 MG, QD
     Route: 048
     Dates: start: 20191221, end: 20200527
  2. CAPRELSA [Suspect]
     Active Substance: VANDETANIB
     Indication: MEDULLARY THYROID CANCER
     Dosage: 200 MG, BID
     Route: 048
     Dates: start: 20191221
  3. CAPRELSA [Suspect]
     Active Substance: VANDETANIB
     Dosage: 200 MG, QD
     Route: 048
     Dates: start: 20191221
  4. CAPRELSA [Suspect]
     Active Substance: VANDETANIB
     Dosage: 100 MG, QD (CURRENT DOSE)
     Route: 048

REACTIONS (10)
  - Syncope [Unknown]
  - Parosmia [Unknown]
  - Dyspnoea [Unknown]
  - Appendicectomy [Unknown]
  - Heart rate increased [Unknown]
  - Dizziness [Unknown]
  - Solar dermatitis [Unknown]
  - Blood pressure increased [Unknown]
  - Rash pruritic [Unknown]
  - Unevaluable event [Unknown]
